FAERS Safety Report 11213219 (Version 1)
Quarter: 2015Q2

REPORT INFORMATION
  Report Type: Spontaneous
  Country: US (occurrence: US)
  Receive Date: 20150623
  Receipt Date: 20150623
  Transmission Date: 20150821
  Serious: No
  Sender: FDA-Public Use
  Company Number: US-GLAXOSMITHKLINE-US2015GSK084566

PATIENT
  Age: 67 Year
  Sex: Male
  Weight: 95.24 kg

DRUGS (16)
  1. NIFEDIPINE. [Concomitant]
     Active Substance: NIFEDIPINE
  2. ACYCLOVIR. [Concomitant]
     Active Substance: ACYCLOVIR
  3. DEXAMETHASONE. [Concomitant]
     Active Substance: DEXAMETHASONE
  4. COLACE [Concomitant]
     Active Substance: DOCUSATE SODIUM
  5. ASPIRIN. [Concomitant]
     Active Substance: ASPIRIN
  6. ZANTAC [Concomitant]
     Active Substance: RANITIDINE HYDROCHLORIDE
  7. CLOPIDOGREL [Concomitant]
     Active Substance: CLOPIDOGREL BISULFATE
  8. MEKINIST [Suspect]
     Active Substance: TRAMETINIB DIMETHYL SULFOXIDE
     Indication: PLASMA CELL MYELOMA
     Dosage: 2 MG, QD
     Route: 048
     Dates: start: 20150514
  9. ALLEGRA [Concomitant]
     Active Substance: FEXOFENADINE HYDROCHLORIDE
  10. SIMVASTATIN. [Concomitant]
     Active Substance: SIMVASTATIN
  11. MEKINIST [Suspect]
     Active Substance: TRAMETINIB DIMETHYL SULFOXIDE
     Dosage: 2 UNK, UNK
     Route: 048
     Dates: start: 20150513
  12. LOVENOX [Concomitant]
     Active Substance: ENOXAPARIN SODIUM
  13. METOPROLOL [Concomitant]
     Active Substance: METOPROLOL
  14. COUMADIN [Concomitant]
     Active Substance: WARFARIN SODIUM
  15. LORAZEPAM. [Concomitant]
     Active Substance: LORAZEPAM
  16. VENTOLIN [Concomitant]
     Active Substance: ALBUTEROL SULFATE

REACTIONS (4)
  - Diarrhoea [Not Recovered/Not Resolved]
  - Acne [Not Recovered/Not Resolved]
  - Scab [Not Recovered/Not Resolved]
  - Rash [Unknown]

NARRATIVE: CASE EVENT DATE: 201505
